FAERS Safety Report 15123765 (Version 1)
Quarter: 2018Q3

REPORT INFORMATION
  Report Type: Spontaneous
  Country: US (occurrence: US)
  Receive Date: 20180710
  Receipt Date: 20180710
  Transmission Date: 20181010
  Serious: No
  Sender: FDA-Public Use
  Company Number: US-AUROBINDO-AUR-APU-2018-020296

PATIENT
  Age: 33 Year
  Weight: 65.77 kg

DRUGS (3)
  1. GUAIFENESINANDDEXTROMETHORPHANHYDROBROMIDEEXTENDED?RELEASETABLET (OTC) [Suspect]
     Active Substance: DEXTROMETHORPHAN HYDROBROMIDE\GUAIFENESIN
     Indication: COUGH
  2. CLARITIN [Concomitant]
     Active Substance: LORATADINE
     Indication: PRODUCT USED FOR UNKNOWN INDICATION
     Dosage: EARLY IN THE DAY
  3. GUAIFENESINANDDEXTROMETHORPHANHYDROBROMIDEEXTENDED?RELEASETABLET (OTC) [Suspect]
     Active Substance: DEXTROMETHORPHAN HYDROBROMIDE\GUAIFENESIN
     Indication: PULMONARY CONGESTION
     Dosage: UNK TABLET
     Route: 065
     Dates: start: 20180411, end: 20180411

REACTIONS (2)
  - Dizziness [Unknown]
  - Hyperhidrosis [Unknown]
